FAERS Safety Report 25973297 (Version 1)
Quarter: 2025Q4

REPORT INFORMATION
  Report Type: Spontaneous
  Country: EU (occurrence: EU)
  Receive Date: 20251029
  Receipt Date: 20251029
  Transmission Date: 20260118
  Serious: Yes (Hospitalization)
  Sender: ACCORD
  Company Number: None

PATIENT
  Age: 62 Year
  Sex: Female
  Weight: 86 kg

DRUGS (2)
  1. CARBOPLATIN [Suspect]
     Active Substance: CARBOPLATIN
     Indication: Product used for unknown indication
     Dosage: ONGOING CHEMOTHERAPY (9TH DOSE OF CARBO/TAX ON 20.8.25)
     Dates: start: 20250528, end: 20250820
  2. PACLITAXEL [Concomitant]
     Active Substance: PACLITAXEL
     Dosage: ONGOING CHEMOTHERAPY (9TH DOSE OF CARBO/TAX ON 20.8.25)
     Dates: start: 20250528

REACTIONS (6)
  - Anaphylactic reaction [Recovered/Resolved]
  - Flushing [Recovered/Resolved]
  - Nausea [Recovered/Resolved]
  - Anal incontinence [Recovered/Resolved]
  - Hypotension [Recovered/Resolved]
  - Tachycardia [Recovered/Resolved]

NARRATIVE: CASE EVENT DATE: 20250820
